FAERS Safety Report 8601574-7 (Version None)
Quarter: 2012Q3

REPORT INFORMATION
  Report Type: 
  Country: None (occurrence: None)
  Receive Date: 20120817
  Receipt Date: 20111205
  Transmission Date: 20120928
  Serious: No
  Sender: FDA-Public Use
  Company Number: US-BRISTOL-MYERS SQUIBB COMPANY-16271140

PATIENT
  Age: 53 Year
  Sex: Female

DRUGS (2)
  1. ZOFRAN [Concomitant]
     Indication: NAUSEA
  2. SPRYCEL [Suspect]
     Indication: CHRONIC MYELOID LEUKAEMIA

REACTIONS (3)
  - LETHARGY [None]
  - COUGH [None]
  - SECRETION DISCHARGE [None]
